FAERS Safety Report 6003192-6 (Version None)
Quarter: 2008Q4

REPORT INFORMATION
  Report Type: 
  Country: None (occurrence: None)
  Receive Date: 20081216
  Receipt Date: 20081209
  Transmission Date: 20090506
  Serious: Yes (Other)
  Sender: FDA-Public Use
  Company Number: FR-ROXANE LABORATORIES, INC.-2008-RO-00380RO

PATIENT
  Age: 45 Year
  Sex: Male

DRUGS (5)
  1. AZATHIOPRINE [Suspect]
     Indication: CROHN'S DISEASE
     Dates: start: 20050101
  2. AZATHIOPRINE [Suspect]
     Dates: start: 20051114
  3. RIBAVIRIN PLUS PEGINTERFERON ALPHA [Suspect]
     Indication: HEPATITIS C
     Dates: start: 20051006
  4. NEUPOGEN [Concomitant]
     Indication: NEUTROPHIL COUNT DECREASED
  5. BLOOD TRANSFUSION [Concomitant]
     Indication: ANAEMIA

REACTIONS (2)
  - BONE MARROW FAILURE [None]
  - DRUG INTERACTION [None]
